FAERS Safety Report 4801728-1 (Version None)
Quarter: 2005Q4

REPORT INFORMATION
  Report Type: 
  Country: None (occurrence: None)
  Receive Date: 20051012
  Receipt Date: 20050929
  Transmission Date: 20060501
  Serious: Yes (Disabling)
  Sender: FDA-Public Use
  Company Number: 2005137333

PATIENT
  Age: 62 Year
  Sex: Female

DRUGS (7)
  1. GENOTROPIN [Suspect]
     Indication: HYPOPITUITARISM
     Dosage: 0.3 MG (DAILY),
     Dates: start: 19960612
  2. METFORMIN (METFORMIN) [Concomitant]
  3. ENALAPRIL MALEATE [Concomitant]
  4. LASIX RETARD (FUROSEMIDE) [Concomitant]
  5. ZOCORD (SIMVASTATIN) [Concomitant]
  6. NOVORAPID (INSULIN ASPART) [Concomitant]
  7. INSULATARD NPH HUMAN [Concomitant]

REACTIONS (4)
  - ABDOMINAL PAIN [None]
  - ANGIOMYOLIPOMA [None]
  - BACK PAIN [None]
  - RENAL CELL CARCINOMA STAGE UNSPECIFIED [None]
